FAERS Safety Report 25290136 (Version 2)
Quarter: 2025Q2

REPORT INFORMATION
  Report Type: Report from Study
  Country: TH (occurrence: TH)
  Receive Date: 20250510
  Receipt Date: 20250528
  Transmission Date: 20250717
  Serious: Yes (Death, Hospitalization, Other)
  Sender: MERCK SHARP & DOHME LLC
  Company Number: TH-009507513-2406THA008573

PATIENT
  Age: 68 Year
  Sex: Male

DRUGS (4)
  1. KEYTRUDA [Suspect]
     Active Substance: PEMBROLIZUMAB
     Indication: Hepatocellular carcinoma
     Dosage: DOSE DESCRIPTION : 200 MILLIGRAM, Q3W; STRENGTH: 100 MILLIGRAM?DAILY DOSE : 9.4 MILLIGRAM?REGIMEN...
     Route: 042
     Dates: start: 20240528, end: 20240528
  2. KEYTRUDA [Suspect]
     Active Substance: PEMBROLIZUMAB
     Indication: Hepatocellular carcinoma
     Dosage: DOSE DESCRIPTION : 200 MILLIGRAM, Q3W; STRENGTH: 100 MILLIGRAM?DAILY DOSE : 9.4 MILLIGRAM?REGIMEN...
     Route: 042
     Dates: start: 20240617, end: 20240617
  3. KEYTRUDA [Suspect]
     Active Substance: PEMBROLIZUMAB
     Indication: Hepatocellular carcinoma
     Dosage: DOSE DESCRIPTION : 200 MILLIGRAM, Q3W,  STRENGTH: 100 MILLIGRAM; 8TH CYCLE?DAILY DOSE : 9.4 MILLI...
     Route: 042
     Dates: start: 20241102, end: 20241102
  4. KEYTRUDA [Suspect]
     Active Substance: PEMBROLIZUMAB
     Indication: Hepatocellular carcinoma
     Dosage: DOSE DESCRIPTION : 200 MILLIGRAM, Q3W,  STRENGTH: 100 MILLIGRAM; 8TH CYCLE?DAILY DOSE : 9.4 MILLI...
     Route: 042
     Dates: start: 20250405, end: 20250405

REACTIONS (10)
  - Renal function test abnormal [Fatal]
  - Drug resistance [Fatal]
  - Cardiac arrest [Fatal]
  - Biliary catheter insertion [Unknown]
  - Disease complication [Unknown]
  - Pneumonia [Recovering/Resolving]
  - Pyrexia [Not Recovered/Not Resolved]
  - Blood pressure decreased [Not Recovered/Not Resolved]
  - Economic problem [Unknown]
  - Inappropriate schedule of product administration [Unknown]

NARRATIVE: CASE EVENT DATE: 20240101
